FAERS Safety Report 12398604 (Version 1)
Quarter: 2016Q2

REPORT INFORMATION
  Report Type: Spontaneous
  Country: US (occurrence: US)
  Receive Date: 20160524
  Receipt Date: 20160524
  Transmission Date: 20160815
  Serious: Yes (Other)
  Sender: FDA-Public Use
  Company Number: US-SA-2015SA036761

PATIENT
  Sex: Male

DRUGS (3)
  1. SOLOSTAR [Concomitant]
     Active Substance: DEVICE
  2. HUMALOG [Concomitant]
     Active Substance: INSULIN LISPRO
  3. LANTUS SOLOSTAR [Suspect]
     Active Substance: INSULIN GLARGINE
     Indication: TYPE 2 DIABETES MELLITUS
     Dosage: DOSE:35-40 UNITS DOSE:42 UNIT(S)
     Route: 065
     Dates: start: 1995

REACTIONS (5)
  - Loss of consciousness [Not Recovered/Not Resolved]
  - Visual acuity reduced [Not Recovered/Not Resolved]
  - Blood glucose increased [Not Recovered/Not Resolved]
  - Blood glucose decreased [Not Recovered/Not Resolved]
  - Drug dose omission [Unknown]
